FAERS Safety Report 23407125 (Version 1)
Quarter: 2024Q1

REPORT INFORMATION
  Report Type: Spontaneous
  Country: US (occurrence: US)
  Receive Date: 20240116
  Receipt Date: 20240116
  Transmission Date: 20240410
  Serious: No
  Sender: FDA-Public Use
  Company Number: US-BIOGEN-2024BI01245295

PATIENT
  Age: 68 Year
  Sex: Female

DRUGS (1)
  1. ADUHELM [Suspect]
     Active Substance: ADUCANUMAB-AVWA
     Indication: Product used for unknown indication
     Route: 050
     Dates: end: 20231202

REACTIONS (1)
  - Agitation [Unknown]

NARRATIVE: CASE EVENT DATE: 20230929
